FAERS Safety Report 4756625-7 (Version None)
Quarter: 2005Q3

REPORT INFORMATION
  Report Type: 
  Country: None (occurrence: None)
  Receive Date: 20050830
  Receipt Date: 20050823
  Transmission Date: 20060218
  Serious: Yes (Hospitalization)
  Sender: FDA-Public Use
  Company Number: PHNR2005AU01303

PATIENT
  Sex: Male

DRUGS (1)
  1. CLOZARIL [Suspect]
     Dosage: UNK, ONCE/SINGLE
     Dates: start: 20050823, end: 20050823

REACTIONS (3)
  - ACCIDENTAL EXPOSURE [None]
  - CIRCULATORY COLLAPSE [None]
  - SOMNOLENCE [None]
